FAERS Safety Report 8353614-0 (Version None)
Quarter: 2012Q2

REPORT INFORMATION
  Report Type: 
  Country: None (occurrence: None)
  Receive Date: 20120511
  Receipt Date: 20110803
  Transmission Date: 20120825
  Serious: No
  Sender: FDA-Public Use
  Company Number: US-GLAXOSMITHKLINE-A0940268A

PATIENT
  Sex: Female

DRUGS (1)
  1. TYKERB [Suspect]
     Dosage: 1250MG PER DAY
     Route: 048
     Dates: start: 20110729

REACTIONS (6)
  - DRY MOUTH [None]
  - MYALGIA [None]
  - ARTHRALGIA [None]
  - TONGUE ULCERATION [None]
  - INSOMNIA [None]
  - DIARRHOEA [None]
